FAERS Safety Report 9050713 (Version 4)
Quarter: 2013Q1

REPORT INFORMATION
  Report Type: Spontaneous
  Country: BR (occurrence: BR)
  Receive Date: 20130205
  Receipt Date: 20130301
  Transmission Date: 20140127
  Serious: Yes (Other)
  Sender: FDA-Public Use
  Company Number: BR-AMGEN-BRACT2011069851

PATIENT
  Age: 37 Year
  Sex: Female
  Weight: 50 kg

DRUGS (7)
  1. ENBREL [Suspect]
     Indication: ANKYLOSING SPONDYLITIS
     Dosage: 50 MG, QWK
     Route: 058
     Dates: start: 201103
  2. METHOTREXATE [Concomitant]
     Dosage: 4 DF, WEEKLY 4 TABLETS OF UNSPECIFIED DOSAGE PER WEEK
  3. NIMESULIDE [Concomitant]
     Dosage: TWO TABLETS OF 100MG (200 MG), DAILY
  4. DIANE [Concomitant]
     Indication: ORAL CONTRACEPTION
     Dosage: 1 DF, 1X/DAY
  5. CODEINE [Concomitant]
     Indication: PAIN
     Dosage: 30 MG, AS NEEDED (IF FEELING PAIN)
  6. BUDESONIDE [Concomitant]
     Dosage: UNK
  7. LORATADINE [Concomitant]
     Dosage: UNK

REACTIONS (7)
  - Incorrect product storage [Unknown]
  - Nephrolithiasis [Unknown]
  - Injection site warmth [Unknown]
  - Injection site pain [Unknown]
  - Injection site nodule [Unknown]
  - Injection site erythema [Unknown]
  - Injection site discolouration [Unknown]
